FAERS Safety Report 5416926-6 (Version None)
Quarter: 2007Q3

REPORT INFORMATION
  Report Type: 
  Country: None (occurrence: None)
  Receive Date: 20070816
  Receipt Date: 20070804
  Transmission Date: 20080115
  Serious: Yes (Disabling, Other)
  Sender: FDA-Public Use
  Company Number: US-PFIZER INC-2007018385

PATIENT
  Sex: Female
  Weight: 74.4 kg

DRUGS (9)
  1. NORVASC [Suspect]
     Indication: HYPERTENSION
  2. NORVASC [Suspect]
     Indication: AORTIC ANEURYSM
  3. LEVOTHROID [Concomitant]
  4. XANAX [Concomitant]
  5. COUMADIN [Concomitant]
  6. TAGAMET [Concomitant]
     Indication: GASTROOESOPHAGEAL REFLUX DISEASE
  7. ASCORBIC ACID [Concomitant]
  8. VITAMIN D [Concomitant]
  9. MYLANTA [Concomitant]
     Indication: GASTROOESOPHAGEAL REFLUX DISEASE

REACTIONS (6)
  - DIAPHRAGMATIC DISORDER [None]
  - FALL [None]
  - LOWER LIMB FRACTURE [None]
  - LUNG DISORDER [None]
  - OSTEOPENIA [None]
  - VASCULAR GRAFT [None]
